FAERS Safety Report 4504079-8 (Version None)
Quarter: 2004Q4

REPORT INFORMATION
  Report Type: 
  Country: None (occurrence: None)
  Receive Date: 20041118
  Receipt Date: 20041109
  Transmission Date: 20050328
  Serious: Yes (Hospitalization)
  Sender: FDA-Public Use
  Company Number: BR-JNJFOC-20041102622

PATIENT
  Sex: Female

DRUGS (5)
  1. REMICADE [Suspect]
     Indication: CROHN'S DISEASE
     Route: 042
  2. AZATHIOPRINE [Concomitant]
  3. ACETAMINOPHEN [Concomitant]
     Indication: PREMEDICATION
     Dosage: PRIOR TO THIRD INFUSION
  4. HYDROCORTISONE [Concomitant]
     Indication: PREMEDICATION
     Dosage: PRIOR TO THIRD INFUSION
  5. HYDROXYZINE [Concomitant]
     Indication: PREMEDICATION
     Dosage: PRIOR TO THIRD INFUSION

REACTIONS (6)
  - BONE PAIN [None]
  - CHEST PAIN [None]
  - DIFFICULTY IN WALKING [None]
  - DYSPNOEA [None]
  - HYPERAEMIA [None]
  - HYPERSENSITIVITY [None]
